FAERS Safety Report 7215197-8 (Version None)
Quarter: 2011Q1

REPORT INFORMATION
  Report Type: 
  Country: None (occurrence: None)
  Receive Date: 20110107
  Receipt Date: 20101014
  Transmission Date: 20110831
  Serious: No
  Sender: FDA-Public Use
  Company Number: A0887749A

PATIENT

DRUGS (1)
  1. LOVAZA [Suspect]

REACTIONS (4)
  - DRUG INEFFECTIVE [None]
  - INCORRECT STORAGE OF DRUG [None]
  - DYSGEUSIA [None]
  - BLOOD TRIGLYCERIDES INCREASED [None]
